FAERS Safety Report 4285035-4 (Version None)
Quarter: 2004Q1

REPORT INFORMATION
  Report Type: 
  Country: None (occurrence: None)
  Receive Date: 20040204
  Receipt Date: 20040128
  Transmission Date: 20041129
  Serious: Yes (Disabling)
  Sender: FDA-Public Use
  Company Number: WAES 0401USA02101

PATIENT
  Age: 85 Year
  Sex: Male

DRUGS (6)
  1. FOSAMAX [Concomitant]
     Route: 048
  2. CYANOCOBALAMIN [Concomitant]
  3. VITAPLEX [Concomitant]
  4. SINGULAIR [Suspect]
     Indication: ASTHMA
     Route: 048
     Dates: start: 20020101
  5. ALEVE [Concomitant]
     Indication: BACK PAIN
     Dates: start: 20031001
  6. FLOMAX [Concomitant]

REACTIONS (2)
  - ASTHMA [None]
  - BACK PAIN [None]
